FAERS Safety Report 9128833 (Version 1)
Quarter: 2013Q1

REPORT INFORMATION
  Report Type: Spontaneous
  Country: US (occurrence: US)
  Receive Date: 20130228
  Receipt Date: 20130228
  Transmission Date: 20140127
  Serious: No
  Sender: FDA-Public Use
  Company Number: US-ABBOTT-13P-163-1048045-00

PATIENT
  Age: 75 Year
  Sex: Male
  Weight: 78.09 kg

DRUGS (3)
  1. ANDROGEL 1.62% [Suspect]
     Indication: BLOOD TESTOSTERONE DECREASED
     Dosage: 3 PUMPS
     Route: 061
     Dates: start: 20130128
  2. LOVASTATIN [Concomitant]
     Indication: BLOOD CHOLESTEROL
  3. ALPHA HYDROXY ACIDS [Concomitant]
     Indication: DRY SKIN
     Route: 061

REACTIONS (1)
  - Drug administered at inappropriate site [Not Recovered/Not Resolved]
